FAERS Safety Report 6684605-3 (Version None)
Quarter: 2010Q2

REPORT INFORMATION
  Report Type: 
  Country: None (occurrence: None)
  Receive Date: 20100416
  Receipt Date: 20100412
  Transmission Date: 20101027
  Serious: Yes (Life-Threatening)
  Sender: FDA-Public Use
  Company Number: JP-SANOFI-AVENTIS-2009SA005185

PATIENT
  Age: 73 Year
  Sex: Female
  Weight: 73.8 kg

DRUGS (7)
  1. TAXOTERE [Suspect]
     Dosage: 55MG/DAY/BODY
     Route: 041
     Dates: start: 20090924, end: 20090924
  2. TAXOTERE [Suspect]
     Dosage: 65MG/DAY/BODY
     Route: 041
     Dates: start: 20091015, end: 20091015
  3. TAXOTERE [Suspect]
     Dosage: 65MG/DAY/BODY
     Route: 041
     Dates: start: 20091105, end: 20091105
  4. TRASTUZUMAB [Suspect]
     Dosage: INITIAL DOSAGE: 280 MG
     Route: 041
     Dates: start: 20090924, end: 20091119
  5. TRASTUZUMAB [Suspect]
     Route: 042
     Dates: start: 20090917, end: 20090917
  6. GRANISETRON HYDROCHLORIDE [Concomitant]
     Indication: PREMEDICATION
     Route: 065
     Dates: start: 20090924, end: 20091105
  7. DEXAMETHASONE SODIUM PHOSPHATE [Concomitant]
     Indication: PREMEDICATION
     Route: 065
     Dates: start: 20090924, end: 20091115

REACTIONS (2)
  - ATRIOVENTRICULAR BLOCK COMPLETE [None]
  - BRADYCARDIA [None]
